FAERS Safety Report 6477066-0 (Version None)
Quarter: 2009Q4

REPORT INFORMATION
  Report Type: 
  Country: None (occurrence: None)
  Receive Date: 20091207
  Receipt Date: 20091124
  Transmission Date: 20100525
  Serious: Yes (Hospitalization, Other)
  Sender: FDA-Public Use
  Company Number: FR-ELI_LILLY_AND_COMPANY-FR200911006127

PATIENT
  Sex: Male

DRUGS (8)
  1. ZYPREXA [Suspect]
     Dosage: UNK, UNKNOWN
     Route: 048
  2. OMEPRAZOLE [Concomitant]
     Dosage: 1 D/F, DAILY (1/D)
     Route: 048
  3. NEBILOX [Concomitant]
     Dosage: 0.5 D/F, DAILY (1/D)
     Route: 048
  4. AMLOR [Concomitant]
     Dosage: 5 MG, DAILY (1/D)
     Route: 048
  5. ESIDRIX [Concomitant]
     Dosage: 25 MG, DAILY (1/D)
     Route: 048
  6. COVERSYL [Concomitant]
     Dosage: 10 MG, DAILY (1/D)
     Route: 065
  7. TAHOR [Concomitant]
     Dosage: 80 MG, DAILY (1/D)
     Route: 048
  8. PLAVIX [Concomitant]
     Dosage: 75 MG, DAILY (1/D)
     Route: 048

REACTIONS (3)
  - CEREBRAL CALCIFICATION [None]
  - CLONIC CONVULSION [None]
  - HYPOCALCAEMIA [None]
